FAERS Safety Report 13646136 (Version 1)
Quarter: 2017Q2

REPORT INFORMATION
  Report Type: Spontaneous
  Country: US (occurrence: US)
  Receive Date: 20170612
  Receipt Date: 20170612
  Transmission Date: 20170830
  Serious: Yes (Other)
  Sender: FDA-Public Use
  Company Number: None

PATIENT
  Age: 61 Year
  Sex: Female
  Weight: 74.91 kg

DRUGS (2)
  1. ENBREL [Suspect]
     Active Substance: ETANERCEPT
     Indication: MUSCULAR WEAKNESS
     Dosage: 50 MG/ML ONCE WEEKLY  SUB Q INJECTION
     Route: 058
  2. ENBREL [Suspect]
     Active Substance: ETANERCEPT
     Indication: RHEUMATOID ARTHRITIS
     Dosage: 50 MG/ML ONCE WEEKLY  SUB Q INJECTION
     Route: 058

REACTIONS (3)
  - Drug ineffective [None]
  - Pain [None]
  - Peripheral swelling [None]

NARRATIVE: CASE EVENT DATE: 20170610
